FAERS Safety Report 8438688-0 (Version None)
Quarter: 2012Q2

REPORT INFORMATION
  Report Type: 
  Country: None (occurrence: None)
  Receive Date: 20120611
  Receipt Date: 20120611
  Transmission Date: 20120825
  Serious: Yes (Hospitalization)
  Sender: FDA-Public Use
  Company Number: None

PATIENT
  Age: 57 Year
  Sex: Male

DRUGS (1)
  1. SEROQUEL [Suspect]
     Indication: DEPRESSION
     Dosage: 150MG ONCE A DAY PO
     Route: 048
     Dates: start: 20120301, end: 20120429

REACTIONS (4)
  - HALLUCINATION [None]
  - ANXIETY [None]
  - INTENTIONAL SELF-INJURY [None]
  - CONVULSION [None]
